FAERS Safety Report 5412427-X (Version None)
Quarter: 2007Q3

REPORT INFORMATION
  Report Type: 
  Country: None (occurrence: None)
  Receive Date: 20070813
  Receipt Date: 20070802
  Transmission Date: 20080115
  Serious: Yes (Other)
  Sender: FDA-Public Use
  Company Number: US-JNJFOC-20070605185

PATIENT
  Sex: Female
  Weight: 74.84 kg

DRUGS (7)
  1. REMICADE [Suspect]
     Indication: RHEUMATOID ARTHRITIS
     Route: 042
  2. KLONOPIN [Concomitant]
  3. PEPCID [Concomitant]
  4. PREDNISONE TAB [Concomitant]
  5. VICODIN [Concomitant]
  6. VITAMIN CAP [Concomitant]
  7. FOLIC ACID [Concomitant]

REACTIONS (4)
  - ABDOMINAL PAIN [None]
  - CHEST PAIN [None]
  - HEART RATE ABNORMAL [None]
  - INFUSION RELATED REACTION [None]
